FAERS Safety Report 9807400 (Version 2)
Quarter: 2014Q1

REPORT INFORMATION
  Report Type: Spontaneous
  Country: GB (occurrence: GB)
  Receive Date: 20140110
  Receipt Date: 20140110
  Transmission Date: 20141002
  Serious: Yes (Hospitalization)
  Sender: FDA-Public Use
  Company Number: GB-ELI_LILLY_AND_COMPANY-GB201311005765

PATIENT
  Sex: Female

DRUGS (13)
  1. FORSTEO [Suspect]
     Indication: OSTEOPOROSIS
     Dosage: UNK, UNKNOWN
     Route: 058
  2. SALBUTAMOL [Concomitant]
     Dosage: UNK, UNKNOWN
     Route: 065
  3. RAMIPRIL [Concomitant]
     Dosage: UNK, UNKNOWN
     Route: 065
  4. AMLODIPINE [Concomitant]
     Dosage: UNK, UNKNOWN
     Route: 065
  5. TIOTROPIUM [Concomitant]
     Dosage: UNK, UNKNOWN
     Route: 065
  6. PHYLLOCONTIN [Concomitant]
     Dosage: UNK, UNKNOWN
     Route: 065
  7. CALCEOS [Concomitant]
  8. SULFASALAZINE [Concomitant]
     Dosage: UNK, UNKNOWN
     Route: 065
  9. SERETIDE [Concomitant]
     Dosage: UNK, UNKNOWN
     Route: 065
  10. CARBOCISTEINE [Concomitant]
     Dosage: UNK, UNKNOWN
     Route: 065
  11. LANSOPRAZOLE [Concomitant]
     Dosage: UNK, UNKNOWN
     Route: 065
  12. PARACETAMOL [Concomitant]
     Dosage: UNK, UNKNOWN
     Route: 065
  13. CODEINE [Concomitant]
     Dosage: UNK, UNKNOWN
     Route: 065

REACTIONS (1)
  - Pneumothorax spontaneous [Recovered/Resolved]
